FAERS Safety Report 24886076 (Version 2)
Quarter: 2025Q1

REPORT INFORMATION
  Report Type: Spontaneous
  Country: FR (occurrence: FR)
  Receive Date: 20250125
  Receipt Date: 20250210
  Transmission Date: 20250408
  Serious: Yes (Other)
  Sender: Vantive US Healthcare
  Company Number: FR-VANTIVE-2025VAN000301

PATIENT
  Sex: Female

DRUGS (3)
  1. CALCIUM CL\DEXTROSE\MAGNESIUM CL\SODIUM BICAR\SODIUM CL\SODIUM LACT [Suspect]
     Active Substance: CALCIUM CHLORIDE\DEXTROSE MONOHYDRATE\MAGNESIUM CHLORIDE\SODIUM BICARBONATE\SODIUM CHLORIDE\SODIUM L
     Route: 033
     Dates: start: 202409
  2. Renitec [Concomitant]
     Route: 065
     Dates: start: 20250116
  3. Renitec [Concomitant]
     Route: 065
     Dates: start: 20250116

REACTIONS (4)
  - Pneumoperitoneum [Unknown]
  - Abdominal pain upper [Unknown]
  - Peritoneal dialysis complication [Unknown]
  - Product use complaint [Unknown]
